FAERS Safety Report 5638366-7 (Version None)
Quarter: 2008Q1

REPORT INFORMATION
  Report Type: 
  Country: None (occurrence: None)
  Receive Date: 20080222
  Receipt Date: 20080207
  Transmission Date: 20080703
  Serious: Yes (Disabling)
  Sender: FDA-Public Use
  Company Number: 2007JP005409

PATIENT
  Age: 57 Year
  Sex: Female

DRUGS (7)
  1. PROGRAF [Suspect]
     Indication: RHEUMATOID ARTHRITIS
     Dosage: 1.5 MG, D, ORAL
     Route: 048
     Dates: start: 20071105, end: 20071213
  2. FAMOTIDINE [Concomitant]
  3. NATEGLINIDE [Concomitant]
  4. BUFFERIN (MAGNESIUM CARBONATE) [Concomitant]
  5. PREDNISOLONE [Concomitant]
  6. MAGNESIUM OXIDE (MAGNESIUM OXIDE) [Concomitant]
  7. NSAID'S [Concomitant]

REACTIONS (5)
  - CONDITION AGGRAVATED [None]
  - DRUG ERUPTION [None]
  - MONONEUROPATHY MULTIPLEX [None]
  - NEUROPATHY PERIPHERAL [None]
  - RHEUMATOID ARTHRITIS [None]
